FAERS Safety Report 8988280 (Version 1)
Quarter: 2012Q4

REPORT INFORMATION
  Report Type: 
  Country: DE (occurrence: DE)
  Receive Date: 20121227
  Receipt Date: 20121227
  Transmission Date: 20130627
  Serious: Yes (Other)
  Sender: FDA-Public Use
  Company Number: DE-JNJFOC-20121209161

PATIENT
  Age: 23 Year
  Sex: Female

DRUGS (2)
  1. VERMOX FORTE [Suspect]
     Indication: PRODUCT USED FOR UNKNOWN INDICATION
     Route: 065
  2. CLONT [Interacting]
     Indication: PRODUCT USED FOR UNKNOWN INDICATION
     Route: 065

REACTIONS (4)
  - Leukocytosis [Unknown]
  - Drug interaction [Unknown]
  - Hepatic enzyme increased [Unknown]
  - Diarrhoea [Unknown]
